FAERS Safety Report 9434304 (Version 1)
Quarter: 2013Q3

REPORT INFORMATION
  Report Type: Spontaneous
  Country: US (occurrence: None)
  Receive Date: 20130731
  Receipt Date: 20130731
  Transmission Date: 20140515
  Serious: No
  Sender: FDA-Public Use
  Company Number: None

PATIENT
  Age: 42 Year
  Sex: Female

DRUGS (3)
  1. AZULFIDINE [Suspect]
     Dates: start: 20120314, end: 20120315
  2. REUMOFAN [Suspect]
     Dates: start: 20111211, end: 20120220
  3. AZO YEAST [Suspect]
     Dates: start: 20120216, end: 20120323

REACTIONS (4)
  - Drug-induced liver injury [None]
  - Jaundice [None]
  - Pruritus [None]
  - Hepatocellular injury [None]
